FAERS Safety Report 5015151-0 (Version None)
Quarter: 2006Q2

REPORT INFORMATION
  Report Type: 
  Country: None (occurrence: None)
  Receive Date: 20060530
  Receipt Date: 20060518
  Transmission Date: 20061013
  Serious: Yes (Hospitalization)
  Sender: FDA-Public Use
  Company Number: 2006AP000389

PATIENT
  Age: 80 Year
  Sex: Male

DRUGS (1)
  1. CEFUROXIME AXETIL [Suspect]
     Indication: RESPIRATORY TRACT INFECTION
     Dosage: 250 MG; BID; PO
     Route: 048

REACTIONS (7)
  - ACANTHOSIS [None]
  - EOSINOPHILIA [None]
  - GENERALISED ERYTHEMA [None]
  - HYPERKERATOSIS [None]
  - LEUKOCYTOSIS [None]
  - PRURITUS GENERALISED [None]
  - TYPE IV HYPERSENSITIVITY REACTION [None]
